FAERS Safety Report 8158336-7 (Version None)
Quarter: 2012Q1

REPORT INFORMATION
  Report Type: 
  Country: None (occurrence: None)
  Receive Date: 20120217
  Receipt Date: 20120202
  Transmission Date: 20120608
  Serious: Yes (Death)
  Sender: FDA-Public Use
  Company Number: 2012020100

PATIENT
  Age: 45 Year
  Sex: Female

DRUGS (7)
  1. TIZANIDINE HCL [Suspect]
     Dosage: ORAL
     Route: 048
  2. CARISOPRODOL [Suspect]
     Dosage: ORAL
     Route: 048
  3. BUTALBITAL [Suspect]
     Dosage: ORAL
     Route: 048
  4. METOCLOPRAMIDE [Suspect]
     Dosage: ORAL
     Route: 048
  5. LAXATIVE (LAXATIVE) [Suspect]
     Dosage: ORAL
     Route: 048
  6. CLONAZEPAM [Suspect]
     Dosage: ORAL
     Route: 048
  7. PHENOBARBITAL TAB [Suspect]
     Dosage: ORAL
     Route: 048

REACTIONS (4)
  - CARDIAC ARREST [None]
  - RESPIRATORY ARREST [None]
  - COMPLETED SUICIDE [None]
  - INCORRECT DOSE ADMINISTERED [None]
